FAERS Safety Report 21424082 (Version 2)
Quarter: 2022Q4

REPORT INFORMATION
  Report Type: Report from Study
  Country: IT (occurrence: IT)
  Receive Date: 20221007
  Receipt Date: 20221111
  Transmission Date: 20230113
  Serious: Yes (Hospitalization)
  Sender: FDA-Public Use
  Company Number: IT-BAYER-2022A138804

PATIENT
  Age: 94 Year
  Sex: Male
  Weight: 84 kg

DRUGS (10)
  1. RIVAROXABAN [Suspect]
     Active Substance: RIVAROXABAN
     Indication: Product used for unknown indication
     Dosage: 15 MG
     Route: 048
     Dates: start: 20210701, end: 20210820
  2. RIVAROXABAN [Suspect]
     Active Substance: RIVAROXABAN
     Dosage: 0 MG
     Route: 048
     Dates: start: 20210821, end: 20210920
  3. RIVAROXABAN [Suspect]
     Active Substance: RIVAROXABAN
     Dosage: 0 MG
     Route: 048
     Dates: start: 20220224, end: 20220422
  4. RIVAROXABAN [Suspect]
     Active Substance: RIVAROXABAN
     Dosage: 15 MG
     Route: 048
     Dates: start: 20220423, end: 20220608
  5. RIVAROXABAN [Suspect]
     Active Substance: RIVAROXABAN
     Dosage: 15 MG
     Route: 048
     Dates: start: 20210921, end: 20220223
  6. INSULINE HUMAINE [Concomitant]
     Indication: Diabetes mellitus
     Dosage: UNK, TID
     Route: 058
  7. TELMISARTAN [Concomitant]
     Active Substance: TELMISARTAN
     Indication: Hypertension
     Dosage: 40 MG, QD
     Route: 048
  8. LASIX [Concomitant]
     Active Substance: FUROSEMIDE
     Indication: Hypertension
     Dosage: 25 MG, QD
     Route: 048
  9. SIMVASTATIN [Concomitant]
     Active Substance: SIMVASTATIN
     Indication: Myocardial ischaemia
     Dosage: 10 MG 3 TIMES PER WEEK
     Route: 048
  10. ENOXAPARIN SODIUM [Concomitant]
     Active Substance: ENOXAPARIN SODIUM
     Indication: Atrial fibrillation
     Dosage: 4000 IU, BID
     Route: 058
     Dates: start: 20210821

REACTIONS (1)
  - Anaemia [Not Recovered/Not Resolved]

NARRATIVE: CASE EVENT DATE: 20220608
